FAERS Safety Report 13638119 (Version 2)
Quarter: 2017Q2

REPORT INFORMATION
  Report Type: Spontaneous
  Country: DE (occurrence: DE)
  Receive Date: 20170609
  Receipt Date: 20170619
  Transmission Date: 20170830
  Serious: Yes (Hospitalization, Other)
  Sender: FDA-Public Use
  Company Number: DE-BAYER-2017-105172

PATIENT
  Sex: Female

DRUGS (1)
  1. MIRENA [Suspect]
     Active Substance: LEVONORGESTREL
     Dosage: 20 MCG/24HR, CONT
     Route: 015
     Dates: start: 2008, end: 20170130

REACTIONS (51)
  - Night sweats [Recovered/Resolved]
  - Middle insomnia [Recovered/Resolved]
  - Stress [Recovered/Resolved]
  - Restlessness [Recovered/Resolved]
  - Nervousness [Recovered/Resolved]
  - Anxiety disorder [Recovered/Resolved]
  - Mood swings [Unknown]
  - Muscle rupture [Recovered/Resolved]
  - Musculoskeletal stiffness [Recovered/Resolved]
  - Tongue discomfort [Recovered/Resolved]
  - Dyspepsia [Recovered/Resolved]
  - Muscle strain [Recovered/Resolved]
  - Bruxism [Recovered/Resolved]
  - Temporomandibular joint syndrome [Recovered/Resolved]
  - Dyspnoea [Recovered/Resolved]
  - Depression [Recovered/Resolved]
  - Back pain [Not Recovered/Not Resolved]
  - Initial insomnia [Recovered/Resolved]
  - Sensation of foreign body [Recovered/Resolved]
  - Throat tightness [Recovered/Resolved]
  - Abdominal pain upper [Recovered/Resolved]
  - Arthropathy [Not Recovered/Not Resolved]
  - Eating disorder [Unknown]
  - Fatigue [Recovered/Resolved]
  - Musculoskeletal discomfort [Recovered/Resolved]
  - Muscle tightness [Recovered/Resolved]
  - Pain in extremity [Not Recovered/Not Resolved]
  - Formication [Recovered/Resolved]
  - Anxiety [Recovered/Resolved]
  - Mood swings [Recovered/Resolved]
  - Back pain [Recovered/Resolved]
  - Panic attack [Recovered/Resolved]
  - Tendon disorder [Not Recovered/Not Resolved]
  - Asthenia [Recovered/Resolved]
  - Nuchal rigidity [Recovered/Resolved]
  - Headache [Unknown]
  - Palpitations [Recovered/Resolved]
  - Visual impairment [Recovered/Resolved]
  - Fatigue [Unknown]
  - Asthenia [Recovered/Resolved]
  - Spinal column injury [Not Recovered/Not Resolved]
  - Migraine with aura [Recovered/Resolved]
  - Arrhythmia [Recovered/Resolved]
  - Arthralgia [Recovered/Resolved]
  - Pain in extremity [Recovered/Resolved]
  - Facet joint block [Not Recovered/Not Resolved]
  - Facet joint syndrome [Not Recovered/Not Resolved]
  - Myalgia [Not Recovered/Not Resolved]
  - Arthritis [Not Recovered/Not Resolved]
  - Bronchitis [Unknown]
  - Weight increased [Unknown]

NARRATIVE: CASE EVENT DATE: 201312
